FAERS Safety Report 8441866 (Version 2)
Quarter: 2012Q4

REPORT INFORMATION
  Report Type: 
  Country: US (occurrence: None)
  Receive Date: 20120223
  Receipt Date: 20120914
  Transmission Date: 20130627
  Serious: Yes (Other)
  Sender: FDA-Public Use
  Company Number: 2012AP000396

PATIENT
  Age: 83 Year
  Sex: Male

DRUGS (8)
  1. AMIODARONE HYDROCHLORIDE [Suspect]
     Indication: ATRIAL FIBRILLATION
     Dosage: 200 MG;QD
     Dates: start: 200303
  2. ISONIAZID [Suspect]
     Indication: TUBERCULOSIS
  3. RIFAMPIN [Suspect]
     Indication: TUBERCULOSIS
  4. TAMSULOSIN HYDROCHLORIDE [Concomitant]
  5. ATENOLOL [Concomitant]
  6. NIFEDIPINE [Concomitant]
  7. SIMVASTATIN [Concomitant]
  8. REPAGLINIDE [Concomitant]

REACTIONS (5)
  - CORNEAL DEPOSITS [None]
  - HALO VISION [None]
  - PALPITATIONS [None]
  - DRUG LEVEL BELOW THERAPEUTIC [None]
  - DRUG INTERACTION [None]
